FAERS Safety Report 7006088-6 (Version None)
Quarter: 2010Q3

REPORT INFORMATION
  Report Type: 
  Country: None (occurrence: None)
  Receive Date: 20100921
  Receipt Date: 20100914
  Transmission Date: 20110219
  Serious: Yes (Death)
  Sender: FDA-Public Use
  Company Number: GB-PFIZER INC-2010116372

PATIENT
  Age: 17 Year
  Sex: Male
  Weight: 65 kg

DRUGS (3)
  1. TOLTERODINE TARTRATE [Suspect]
     Dosage: UNK
  2. OXYCODONE HYDROCHLORIDE [Interacting]
     Dosage: UNK
     Route: 048
  3. WARFARIN [Suspect]
     Dosage: 3 MG, UNK

REACTIONS (2)
  - ACCIDENTAL OVERDOSE [None]
  - ALCOHOL INTERACTION [None]
